FAERS Safety Report 4456538-4 (Version None)
Quarter: 2004Q3

REPORT INFORMATION
  Report Type: 
  Country: None (occurrence: None)
  Receive Date: 20040921
  Receipt Date: 20040910
  Transmission Date: 20050211
  Serious: Yes (Hospitalization, Other)
  Sender: FDA-Public Use
  Company Number: EMR64300001-3

PATIENT
  Age: 50 Year
  Sex: Male

DRUGS (7)
  1. NIASPAN [Suspect]
     Indication: DYSLIPIDAEMIA
     Dosage: 1000 MG QD PO
     Route: 048
     Dates: start: 20040722
  2. HYDROCHLOROTHIAZIDE [Concomitant]
  3. FELODIPINE/ RAMIPRIL [Concomitant]
  4. SILDENAFIL CITRATE [Concomitant]
  5. ALLOPURINOL [Concomitant]
  6. INSULIN [Concomitant]
  7. INSULIN ISOPHANE HUMAN BIOSYNTHETIC [Concomitant]

REACTIONS (1)
  - LEUKOENCEPHALOMYELITIS [None]
